FAERS Safety Report 12475207 (Version 3)
Quarter: 2016Q3

REPORT INFORMATION
  Report Type: Spontaneous
  Country: US (occurrence: US)
  Receive Date: 20160617
  Receipt Date: 20160810
  Transmission Date: 20161109
  Serious: No
  Sender: FDA-Public Use
  Company Number: US-PFIZER INC-2016286938

PATIENT
  Age: 78 Year
  Sex: Female

DRUGS (3)
  1. NEURONTIN [Suspect]
     Active Substance: GABAPENTIN
     Indication: HYPOAESTHESIA
     Dosage: 100 MG, 1 TO 3 X DAILY
     Dates: start: 20160101, end: 20160225
  2. NEURONTIN [Suspect]
     Active Substance: GABAPENTIN
     Indication: PAIN
  3. NEURONTIN [Suspect]
     Active Substance: GABAPENTIN
     Indication: ARTHRITIS

REACTIONS (3)
  - Drug ineffective for unapproved indication [Unknown]
  - Memory impairment [Recovered/Resolved]
  - Confusional state [Recovered/Resolved]

NARRATIVE: CASE EVENT DATE: 20160101
